FAERS Safety Report 17025793 (Version 1)
Quarter: 2019Q4

REPORT INFORMATION
  Report Type: Spontaneous
  Country: US (occurrence: US)
  Receive Date: 20191113
  Receipt Date: 20191113
  Transmission Date: 20200122
  Serious: No
  Sender: FDA-Public Use
  Company Number: US-PFIZER INC-2019484541

PATIENT
  Age: 82 Year
  Sex: Male

DRUGS (1)
  1. LINEZOLID. [Suspect]
     Active Substance: LINEZOLID
     Indication: RESPIRATORY TRACT INFECTION
     Dosage: 600 MG, 2X/DAY
     Route: 048

REACTIONS (12)
  - Weight decreased [Unknown]
  - Urinary tract infection [Unknown]
  - Fungal infection [Unknown]
  - Mood swings [Unknown]
  - Somnolence [Unknown]
  - Feeling abnormal [Unknown]
  - Abnormal behaviour [Unknown]
  - Vision blurred [Unknown]
  - Decreased appetite [Unknown]
  - Rhinitis [Unknown]
  - Fatigue [Unknown]
  - Feeling cold [Unknown]
